FAERS Safety Report 23159731 (Version 1)
Quarter: 2023Q4

REPORT INFORMATION
  Report Type: Spontaneous
  Country: TR (occurrence: TR)
  Receive Date: 20231108
  Receipt Date: 20231108
  Transmission Date: 20240110
  Serious: Yes (Other)
  Sender: FDA-Public Use
  Company Number: TR-MLMSERVICE-20231027-4628250-1

PATIENT
  Age: 66 Year
  Sex: Female

DRUGS (4)
  1. BETAMETHASONE DIPROPIONATE\BETAMETHASONE SODIUM PHOSPHATE [Suspect]
     Active Substance: BETAMETHASONE DIPROPIONATE\BETAMETHASONE SODIUM PHOSPHATE
     Indication: Nerve block
     Dosage: 6 MILLIGRAM, ONCE
  2. BUPIVACAINE [Concomitant]
     Active Substance: BUPIVACAINE
     Indication: Nerve block
     Dosage: 9 CUBIC CAPACITY (CC), ONCE
  3. PRILOCAINE [Concomitant]
     Active Substance: PRILOCAINE
     Indication: Local anaesthesia
     Dosage: UNK
  4. IOHEXOL [Concomitant]
     Active Substance: IOHEXOL
     Dosage: 1 MILLILITER, ONCE

REACTIONS (1)
  - Lumbar vertebral fracture [Recovering/Resolving]
